FAERS Safety Report 9610687 (Version 1)
Quarter: 2013Q4

REPORT INFORMATION
  Report Type: Spontaneous
  Country: US (occurrence: US)
  Receive Date: 20131009
  Receipt Date: 20131009
  Transmission Date: 20140711
  Serious: Yes (Hospitalization, Other)
  Sender: FDA-Public Use
  Company Number: US-009507513-1310USA001344

PATIENT
  Age: 15 Month
  Sex: Male
  Weight: 13.61 kg

DRUGS (1)
  1. CLARITIN ORAL SOLUTION [Suspect]
     Indication: RHINORRHOEA
     Dosage: .5 ML, ONCE
     Route: 048
     Dates: start: 20130928

REACTIONS (5)
  - Convulsion [Recovering/Resolving]
  - Pyrexia [Recovering/Resolving]
  - Ear infection [Recovering/Resolving]
  - Drug administered to patient of inappropriate age [Recovering/Resolving]
  - Off label use [Recovering/Resolving]
